FAERS Safety Report 6380815-3 (Version None)
Quarter: 2009Q3

REPORT INFORMATION
  Report Type: 
  Country: None (occurrence: None)
  Receive Date: 20090929
  Receipt Date: 20090918
  Transmission Date: 20100115
  Serious: Yes (Hospitalization)
  Sender: FDA-Public Use
  Company Number: CA-BAXTER-2009BH014573

PATIENT
  Sex: Male

DRUGS (3)
  1. EXTRANEAL [Suspect]
     Indication: PERITONEAL DIALYSIS
     Route: 033
     Dates: start: 20041224, end: 20090901
  2. EXTRANEAL [Suspect]
     Route: 033
     Dates: start: 20030501, end: 20041224
  3. DIANEAL [Concomitant]
     Indication: PERITONEAL DIALYSIS
     Route: 033
     Dates: start: 20030501, end: 20090901

REACTIONS (3)
  - CARDIAC ARREST [None]
  - CAUSTIC INJURY [None]
  - PERITONITIS [None]
